FAERS Safety Report 16255341 (Version 1)
Quarter: 2019Q2

REPORT INFORMATION
  Report Type: Spontaneous
  Country: PT (occurrence: PT)
  Receive Date: 20190430
  Receipt Date: 20190430
  Transmission Date: 20190711
  Serious: Yes (Other)
  Sender: FDA-Public Use
  Company Number: PT-TEVA-2019-PT-1042926

PATIENT
  Age: 44 Year
  Sex: Male

DRUGS (2)
  1. COTRIMOXAZOL RATIOPHARM [Suspect]
     Active Substance: SULFAMETHOXAZOLE\TRIMETHOPRIM
     Indication: PNEUMONIA
     Dosage: 15MG/KG EACH 6 HOURS
     Route: 048
  2. MEROPENEM. [Concomitant]
     Active Substance: MEROPENEM
     Indication: PNEUMONIA
     Dosage: 1 G 8/8 H

REACTIONS (4)
  - Eosinophilia [Recovered/Resolved]
  - Pyrexia [Recovered/Resolved]
  - Drug hypersensitivity [Recovered/Resolved]
  - Subcutaneous emphysema [Recovered/Resolved]
